FAERS Safety Report 6402499-8 (Version None)
Quarter: 2009Q4

REPORT INFORMATION
  Report Type: 
  Country: None (occurrence: None)
  Receive Date: 20091015
  Receipt Date: 20091008
  Transmission Date: 20100525
  Serious: Yes (Hospitalization, Other)
  Sender: FDA-Public Use
  Company Number: US-B.I. PHARMACEUTICALS,INC./RIDGEFIELD-2009-BP-11806BP

PATIENT
  Age: 83 Year
  Sex: Female

DRUGS (3)
  1. MOBIC [Suspect]
     Route: 065
  2. CELEBREX [Suspect]
     Indication: BACK PAIN
     Dosage: 200 MG
     Route: 048
     Dates: start: 20090611
  3. CELEBREX [Suspect]
     Indication: ARTHRALGIA

REACTIONS (2)
  - ANAEMIA [None]
  - GASTROINTESTINAL HAEMORRHAGE [None]
